FAERS Safety Report 5422124-2 (Version None)
Quarter: 2007Q3

REPORT INFORMATION
  Report Type: 
  Country: None (occurrence: None)
  Receive Date: 20070821
  Receipt Date: 20070821
  Transmission Date: 20080115
  Serious: Yes (Life-Threatening, Other)
  Sender: FDA-Public Use
  Company Number: None

PATIENT
  Sex: Female
  Weight: 68.0396 kg

DRUGS (3)
  1. PROPOFOL [Suspect]
     Indication: COLONOSCOPY
     Dates: start: 20070817, end: 20070817
  2. LEVAQUIN [Concomitant]
  3. LACTATED RINGER'S [Concomitant]

REACTIONS (3)
  - ASPIRATION [None]
  - HAEMOPTYSIS [None]
  - OXYGEN SATURATION DECREASED [None]
